FAERS Safety Report 13676721 (Version 1)
Quarter: 2017Q2

REPORT INFORMATION
  Report Type: Spontaneous
  Country: US (occurrence: US)
  Receive Date: 20170622
  Receipt Date: 20170622
  Transmission Date: 20170830
  Serious: No
  Sender: FDA-Public Use
  Company Number: US-PFIZER INC-2017269512

PATIENT
  Sex: Female

DRUGS (4)
  1. IBRANCE [Suspect]
     Active Substance: PALBOCICLIB
     Dosage: 100 MG, UNK
  2. XGEVA [Suspect]
     Active Substance: DENOSUMAB
     Dosage: UNK
  3. IBRANCE [Suspect]
     Active Substance: PALBOCICLIB
     Indication: BREAST CANCER
     Dosage: 75 MG, CYCLIC, (FOR 21 DAYS ON, AND 7 DAYS OFF - REPEAT )
     Route: 048
     Dates: start: 201702
  4. IBRANCE [Suspect]
     Active Substance: PALBOCICLIB
     Dosage: 125 MG, UNK

REACTIONS (2)
  - Hot flush [Unknown]
  - Muscle spasms [Unknown]
